FAERS Safety Report 17509466 (Version 6)
Quarter: 2020Q2

REPORT INFORMATION
  Report Type: Spontaneous
  Country: US (occurrence: US)
  Receive Date: 20200306
  Receipt Date: 20200625
  Transmission Date: 20200713
  Serious: No
  Sender: FDA-Public Use
  Company Number: US-SA-2020SA055017

PATIENT

DRUGS (7)
  1. OTEZLA [Suspect]
     Active Substance: APREMILAST
  2. CALCIUM [Concomitant]
     Active Substance: CALCIUM
     Dosage: 600 MG
     Route: 065
  3. AUBAGIO [Suspect]
     Active Substance: TERIFLUNOMIDE
     Indication: MULTIPLE SCLEROSIS
     Dosage: 14 MG, QD
     Route: 048
     Dates: start: 20200227, end: 2020
  4. METOPROLOL SUCCINATE. [Concomitant]
     Active Substance: METOPROLOL SUCCINATE
     Route: 065
  5. EXTAVIA [Concomitant]
     Active Substance: INTERFERON BETA-1B
  6. VITAMIN D [COLECALCIFEROL] [Concomitant]
     Active Substance: CHOLECALCIFEROL
     Dosage: 10 UG
     Route: 065
  7. ALPRAZOLAM. [Concomitant]
     Active Substance: ALPRAZOLAM
     Dosage: 0.5 MG
     Route: 065

REACTIONS (14)
  - Condition aggravated [Unknown]
  - Feeling jittery [Unknown]
  - Depression [Unknown]
  - Decreased interest [Unknown]
  - Tremor [Unknown]
  - Dysarthria [Unknown]
  - Stress [Unknown]
  - Inappropriate schedule of product administration [Unknown]
  - Abdominal pain upper [Unknown]
  - Nervousness [Unknown]
  - Unevaluable event [Unknown]
  - Depressed mood [Unknown]
  - Crying [Unknown]
  - Drug ineffective [Unknown]

NARRATIVE: CASE EVENT DATE: 2020
